FAERS Safety Report 6476256-0 (Version None)
Quarter: 2009Q4

REPORT INFORMATION
  Report Type: 
  Country: None (occurrence: None)
  Receive Date: 20091206
  Receipt Date: 20091018
  Transmission Date: 20100525
  Serious: No
  Sender: FDA-Public Use
  Company Number: US-AMGEN-KDL369942

PATIENT
  Sex: Male

DRUGS (1)
  1. ENBREL [Suspect]
     Indication: RHEUMATOID ARTHRITIS
     Route: 058
     Dates: start: 20081227

REACTIONS (5)
  - FATIGUE [None]
  - INFECTION [None]
  - PAIN [None]
  - PHARYNGEAL DISORDER [None]
  - RASH GENERALISED [None]
